FAERS Safety Report 15664359 (Version 1)
Quarter: 2018Q4

REPORT INFORMATION
  Report Type: Spontaneous
  Country: US (occurrence: US)
  Receive Date: 20181127
  Receipt Date: 20181127
  Transmission Date: 20190205
  Serious: Yes (Other)
  Sender: FDA-Public Use
  Company Number: None

PATIENT
  Age: 67 Year
  Sex: Female
  Weight: 80.1 kg

DRUGS (15)
  1. BREWERS [Concomitant]
  2. BREO ELLIPTA [Suspect]
     Active Substance: FLUTICASONE FUROATE\VILANTEROL TRIFENATATE
     Indication: ASTHMA
     Dosage: ?          QUANTITY:1 PUFF(S);?
     Route: 055
     Dates: start: 20180416, end: 20181118
  3. OMEPRAZOLE, [Concomitant]
  4. VITAMINS D3 [Concomitant]
  5. OSTEOBIFLEX [Concomitant]
  6. BREO ELLIPTA [Suspect]
     Active Substance: FLUTICASONE FUROATE\VILANTEROL TRIFENATATE
     Indication: MULTIPLE ALLERGIES
     Dosage: ?          QUANTITY:1 PUFF(S);?
     Route: 055
     Dates: start: 20180416, end: 20181118
  7. ADVAIR HFA [Concomitant]
     Active Substance: FLUTICASONE PROPIONATE\SALMETEROL XINAFOATE
  8. VITAMIN B6 [Concomitant]
     Active Substance: PYRIDOXINE HYDROCHLORIDE
  9. PROBIOTICS [Concomitant]
     Active Substance: PROBIOTICS NOS
  10. LORATIDINE [Concomitant]
     Active Substance: LORATADINE
  11. VITAMINS B12 [Concomitant]
  12. HUMIRA [Concomitant]
     Active Substance: ADALIMUMAB
  13. MILK THISTLE [Concomitant]
     Active Substance: DIETARY SUPPLEMENT\HERBALS\MILK THISTLE
  14. FLORASTOR GUAIFENESIN. [Concomitant]
  15. SUDAFED [Concomitant]
     Active Substance: PSEUDOEPHEDRINE HYDROCHLORIDE

REACTIONS (3)
  - Product substitution issue [None]
  - Dysphonia [None]
  - Drug ineffective [None]

NARRATIVE: CASE EVENT DATE: 20180416
